FAERS Safety Report 5171438-2 (Version None)
Quarter: 2006Q4

REPORT INFORMATION
  Report Type: 
  Country: None (occurrence: None)
  Receive Date: 20061208
  Receipt Date: 20061208
  Transmission Date: 20070319
  Serious: Yes (Hospitalization)
  Sender: FDA-Public Use
  Company Number: None

PATIENT
  Age: 37 Year
  Sex: Male
  Weight: 86.1834 kg

DRUGS (1)
  1. LEVAQUIN [Suspect]
     Indication: SINUSITIS
     Dosage: 500 MG TABLET  ONCE A DAY PO
     Route: 048
     Dates: start: 20061201, end: 20061201

REACTIONS (23)
  - ABASIA [None]
  - BACK PAIN [None]
  - BLINDNESS [None]
  - BLOOD PRESSURE DECREASED [None]
  - BONE PAIN [None]
  - CHILLS [None]
  - DEHYDRATION [None]
  - DIZZINESS [None]
  - DYSPHAGIA [None]
  - DYSPNOEA [None]
  - FLUID INTAKE REDUCED [None]
  - HEPATIC FUNCTION ABNORMAL [None]
  - HEPATOCELLULAR DAMAGE [None]
  - HYPERHIDROSIS [None]
  - INJURY [None]
  - LETHARGY [None]
  - MUSCLE SPASMS [None]
  - MUSCULAR WEAKNESS [None]
  - MUSCULOSKELETAL PAIN [None]
  - ORAL INTAKE REDUCED [None]
  - PARAESTHESIA [None]
  - RENAL DISORDER [None]
  - THROAT IRRITATION [None]
